FAERS Safety Report 6694344-0 (Version None)
Quarter: 2010Q2

REPORT INFORMATION
  Report Type: 
  Country: None (occurrence: None)
  Receive Date: 20100423
  Receipt Date: 20100414
  Transmission Date: 20101027
  Serious: Yes (Other)
  Sender: FDA-Public Use
  Company Number: BR-PFIZER INC-2010033518

PATIENT
  Age: 40 Year
  Sex: Female

DRUGS (4)
  1. DEPO-PROVERA [Suspect]
     Indication: CONTRACEPTION
     Dosage: UNK
     Route: 030
     Dates: start: 20100101
  2. VALPROIC ACID [Concomitant]
     Dosage: UNK
  3. LAMOTRIGINE [Concomitant]
     Dosage: 100 MG, UNK
  4. DIAZEPAM [Concomitant]
     Dosage: UNK

REACTIONS (8)
  - ABDOMINAL DISTENSION [None]
  - BREAST ENLARGEMENT [None]
  - DYSMENORRHOEA [None]
  - HEADACHE [None]
  - MEMORY IMPAIRMENT [None]
  - MENORRHAGIA [None]
  - UTERINE LEIOMYOMA [None]
  - WEIGHT INCREASED [None]
